FAERS Safety Report 17770616 (Version 1)
Quarter: 2020Q2

REPORT INFORMATION
  Report Type: Spontaneous
  Country: FR (occurrence: FR)
  Receive Date: 20200512
  Receipt Date: 20200512
  Transmission Date: 20200714
  Serious: Yes (Hospitalization)
  Sender: FDA-Public Use
  Company Number: NVSC2020FR120470

PATIENT
  Age: 91 Year
  Sex: Male

DRUGS (9)
  1. SEVREDOL [Suspect]
     Active Substance: MORPHINE
     Indication: PAIN
     Dosage: 15 MG
     Route: 048
     Dates: start: 20200107, end: 20200112
  2. FUCIDINE (FUSIDATE SODIUM) [Suspect]
     Active Substance: FUSIDATE SODIUM
     Indication: LOCALISED INFECTION
     Dosage: 1500 UG, QD
     Route: 048
     Dates: start: 20191213, end: 20200112
  3. UROREC [Concomitant]
     Active Substance: SILODOSIN
     Indication: PRODUCT USED FOR UNKNOWN INDICATION
     Route: 065
  4. OFLOXACIN. [Suspect]
     Active Substance: OFLOXACIN
     Indication: ORCHITIS
     Dosage: NON RENSEIGN?E
     Route: 048
     Dates: start: 20200103, end: 20200112
  5. HALDOL [Suspect]
     Active Substance: HALOPERIDOL
     Indication: AGITATION
     Dosage: NON RENSEIGN?E
     Route: 048
     Dates: start: 20191213, end: 20200112
  6. FUROSEMIDE. [Concomitant]
     Active Substance: FUROSEMIDE
     Indication: PRODUCT USED FOR UNKNOWN INDICATION
     Route: 065
  7. DOXYCYCLINE. [Suspect]
     Active Substance: DOXYCYCLINE
     Indication: LOCALISED INFECTION
     Dosage: 200 MG, QD
     Route: 048
     Dates: start: 20191213, end: 20200112
  8. ELIQUIS [Suspect]
     Active Substance: APIXABAN
     Indication: PRODUCT USED FOR UNKNOWN INDICATION
     Dosage: 5 MG, QD
     Route: 048
     Dates: start: 20191213, end: 20200112
  9. PARACETAMOL [Suspect]
     Active Substance: ACETAMINOPHEN
     Indication: PAIN
     Dosage: 3 G, QD
     Route: 048
     Dates: start: 20191213, end: 20200112

REACTIONS (2)
  - Hyperbilirubinaemia [Recovering/Resolving]
  - Haematoma [Recovering/Resolving]

NARRATIVE: CASE EVENT DATE: 20200111
